FAERS Safety Report 6816121-X (Version None)
Quarter: 2010Q3

REPORT INFORMATION
  Report Type: 
  Country: None (occurrence: None)
  Receive Date: 20100702
  Receipt Date: 20100702
  Transmission Date: 20110219
  Serious: Yes (Hospitalization)
  Sender: FDA-Public Use
  Company Number: None

PATIENT
  Age: 58 Year
  Sex: Male
  Weight: 67.4 kg

DRUGS (2)
  1. REGULAR INSULIN [Suspect]
     Indication: TYPE 1 DIABETES MELLITUS
     Dosage: 8 UNITS TID SQ 44 UNITS EVERY DAY SQ
     Route: 058
     Dates: start: 20051209, end: 20100630
  2. REGULAR INSULIN [Suspect]
     Indication: TYPE 1 DIABETES MELLITUS
     Dosage: 8 UNITS TID SQ 44 UNITS EVERY DAY SQ
     Route: 058
     Dates: start: 20081022, end: 20100630

REACTIONS (2)
  - HYPOGLYCAEMIA [None]
  - MENTAL STATUS CHANGES [None]
